FAERS Safety Report 9202122 (Version 4)
Quarter: 2013Q2

REPORT INFORMATION
  Report Type: Spontaneous
  Country: JP (occurrence: JP)
  Receive Date: 20130401
  Receipt Date: 20130514
  Transmission Date: 20140414
  Serious: Yes (Death)
  Sender: FDA-Public Use
  Company Number: JP-PFIZER INC-2013098180

PATIENT
  Age: 69 Year
  Sex: Male
  Weight: 70 kg

DRUGS (15)
  1. BENEFIX [Suspect]
     Indication: HAEMOSTASIS
     Dosage: 4000 IU, UNK
     Route: 042
     Dates: start: 20130227, end: 20130228
  2. BENEFIX [Suspect]
     Dosage: 4000 IU, UNK
     Route: 042
     Dates: start: 20130313, end: 20130313
  3. BENEFIX [Suspect]
     Dosage: 4000 IU, UNK
     Route: 042
     Dates: start: 20130318, end: 20130318
  4. BENEFIX [Suspect]
     Dosage: 8000 IU, UNK
     Route: 042
     Dates: start: 20130319, end: 20130319
  5. BENEFIX [Suspect]
     Dosage: 6000 IU, UNK
     Route: 042
     Dates: start: 20130320, end: 20130320
  6. MEROPENEM [Concomitant]
     Dosage: 1 G, DAILY
     Route: 041
     Dates: start: 20130227, end: 20130308
  7. ZOMETA [Concomitant]
     Dosage: 4 MG, DAILY
     Route: 041
     Dates: start: 20130227, end: 20130227
  8. LASIX [Concomitant]
     Dosage: 200 MG, DAILY
     Route: 041
     Dates: start: 20130227, end: 20130315
  9. LASIX [Concomitant]
     Dosage: 1000 MG, DAILY
     Route: 041
     Dates: start: 20130316, end: 20130321
  10. ELCITONIN [Concomitant]
     Dosage: 80 IU, UNK
     Route: 041
     Dates: start: 20130227, end: 20130302
  11. SERENACE [Concomitant]
     Dosage: 2.5 MG, DAILY
     Route: 041
     Dates: start: 20130227, end: 20130305
  12. MORPHINE HYDROCHLORIDE [Concomitant]
     Dosage: 20 MG, DAILY
     Route: 041
     Dates: start: 20130227, end: 20130305
  13. MYOCOR [Concomitant]
     Dosage: 25 MG, DAILY
     Route: 041
     Dates: start: 20130227, end: 20130309
  14. DOPAMINE HYDROCHLORIDE [Concomitant]
     Dosage: 600 MG, DAILY
     Route: 041
     Dates: start: 20130228, end: 20130321
  15. DEXART [Concomitant]
     Dosage: 19.8 MG, UNK
     Route: 041
     Dates: start: 20130304, end: 20130315

REACTIONS (3)
  - Plasma cell myeloma [Fatal]
  - Cardiac failure congestive [Fatal]
  - Renal failure [Fatal]
